FAERS Safety Report 17354767 (Version 1)
Quarter: 2020Q1

REPORT INFORMATION
  Report Type: Spontaneous
  Country: FR (occurrence: FR)
  Receive Date: 20200131
  Receipt Date: 20200131
  Transmission Date: 20200409
  Serious: Yes (Hospitalization)
  Sender: FDA-Public Use
  Company Number: FR-MYLANLABS-2020M1010758

PATIENT
  Age: 68 Year
  Sex: Male

DRUGS (4)
  1. ACICLOVIR MYLAN [Suspect]
     Active Substance: ACYCLOVIR
     Indication: PROPHYLAXIS
     Dosage: 1 DOSAGE FORM, QD (400MG/J)
     Route: 041
     Dates: start: 20191009, end: 20191013
  2. PROGRAF [Suspect]
     Active Substance: TACROLIMUS
     Indication: PROPHYLAXIS AGAINST TRANSPLANT REJECTION
     Dosage: 10 MILLIGRAM, QD
     Route: 048
     Dates: start: 20190904
  3. MEROPENEM. [Suspect]
     Active Substance: MEROPENEM
     Indication: LUNG DISORDER
     Dosage: 1 DOSAGE FORM, QD (3G/J)
     Route: 041
     Dates: start: 20191009, end: 20191011
  4. VANCOMYCIN MYLAN [Suspect]
     Active Substance: VANCOMYCIN
     Indication: LUNG DISORDER
     Dosage: 1 DOSAGE FORM, QD (1.5G/J)
     Route: 041
     Dates: start: 20191009, end: 20191010

REACTIONS (1)
  - Pancytopenia [Not Recovered/Not Resolved]

NARRATIVE: CASE EVENT DATE: 20191014
